FAERS Safety Report 8325103-0 (Version None)
Quarter: 2012Q2

REPORT INFORMATION
  Report Type: 
  Country: None (occurrence: None)
  Receive Date: 20120501
  Receipt Date: 20120426
  Transmission Date: 20120825
  Serious: Yes (Other)
  Sender: FDA-Public Use
  Company Number: US-PFIZER INC-2012103741

PATIENT
  Sex: Female

DRUGS (4)
  1. LIPITOR [Suspect]
     Dosage: UNK
     Route: 048
     Dates: start: 20120401
  2. LIPITOR [Suspect]
     Dosage: 10 MG, UNK
     Route: 048
  3. LIPITOR [Suspect]
     Indication: BLOOD CHOLESTEROL INCREASED
     Dosage: 20 MG, UNK
     Route: 048
  4. ATORVASTATIN CALCIUM [Suspect]
     Indication: BLOOD CHOLESTEROL INCREASED
     Dosage: UNK
     Dates: end: 20120401

REACTIONS (6)
  - FATIGUE [None]
  - CONDITION AGGRAVATED [None]
  - DYSPNOEA [None]
  - SLEEP APNOEA SYNDROME [None]
  - HEART RATE IRREGULAR [None]
  - GAIT DISTURBANCE [None]
